FAERS Safety Report 7233621-1 (Version None)
Quarter: 2011Q1

REPORT INFORMATION
  Report Type: 
  Country: None (occurrence: None)
  Receive Date: 20110119
  Receipt Date: 20110117
  Transmission Date: 20110831
  Serious: Yes (Hospitalization)
  Sender: FDA-Public Use
  Company Number: IT-MERCK-1101ITA00015

PATIENT
  Age: 75 Year
  Sex: Male

DRUGS (13)
  1. PHYTONADIONE [Concomitant]
     Route: 065
  2. CLONIDINE HYDROCHLORIDE [Concomitant]
     Route: 065
  3. ENOXAPARIN SODIUM [Concomitant]
     Route: 065
  4. RAMIPRIL [Concomitant]
     Route: 065
  5. FENTANYL [Concomitant]
     Route: 065
  6. CANCIDAS [Suspect]
     Indication: SEPSIS
     Route: 041
     Dates: start: 20101223, end: 20110110
  7. VITAMINS (UNSPECIFIED) [Concomitant]
     Route: 065
  8. NIFEDIPINE [Concomitant]
     Route: 065
  9. ESOMEPRAZOLE MAGNESIUM [Concomitant]
     Route: 065
  10. TIGECYCLINE [Concomitant]
     Route: 065
  11. ACETAMINOPHEN [Concomitant]
     Route: 065
  12. MORPHINE [Concomitant]
     Route: 065
  13. ALBUMIN HUMAN [Concomitant]
     Route: 065

REACTIONS (1)
  - URTICARIA [None]
